FAERS Safety Report 16490329 (Version 1)
Quarter: 2019Q2

REPORT INFORMATION
  Report Type: Spontaneous
  Country: ES (occurrence: ES)
  Receive Date: 20190628
  Receipt Date: 20190628
  Transmission Date: 20190711
  Serious: Yes (Other)
  Sender: FDA-Public Use
  Company Number: ES-SCIEGEN PHARMACEUTICALS INC-2019SCILIT00204

PATIENT

DRUGS (2)
  1. LORMETAZEPAM [Suspect]
     Active Substance: LORMETAZEPAM
  2. QUETIAPINE. [Suspect]
     Active Substance: QUETIAPINE

REACTIONS (7)
  - Neutropenia [Recovered/Resolved]
  - Urinary retention [Recovered/Resolved]
  - Depressed level of consciousness [Recovered/Resolved]
  - Toxicity to various agents [Unknown]
  - Accidental exposure to product by child [Unknown]
  - Accidental overdose [Unknown]
  - Thrombocytopenia [Recovered/Resolved]
